FAERS Safety Report 18451807 (Version 1)
Quarter: 2020Q4

REPORT INFORMATION
  Report Type: Spontaneous
  Country: US (occurrence: US)
  Receive Date: 20201030
  Receipt Date: 20201030
  Transmission Date: 20210114
  Serious: No
  Sender: FDA-Public Use
  Company Number: None

PATIENT
  Age: 18 Year
  Sex: Female
  Weight: 60.75 kg

DRUGS (9)
  1. MICROGESTIN FE [Concomitant]
     Active Substance: ETHINYL ESTRADIOL\FERROUS FUMARATE\NORETHINDRONE ACETATE
  2. CAFFEINE. [Concomitant]
     Active Substance: CAFFEINE
  3. LORAZEPAM. [Concomitant]
     Active Substance: LORAZEPAM
  4. MELATONIN [Concomitant]
     Active Substance: MELATONIN
  5. MIRENA [Concomitant]
     Active Substance: LEVONORGESTREL
  6. ATIVAN [Suspect]
     Active Substance: LORAZEPAM
     Indication: PANIC DISORDER
     Dosage: ?          QUANTITY:1 TABLET(S);?
     Route: 048
     Dates: start: 20200214
  7. ATIVAN [Suspect]
     Active Substance: LORAZEPAM
     Indication: ANXIETY
     Dosage: ?          QUANTITY:1 TABLET(S);?
     Route: 048
     Dates: start: 20200214
  8. GABAPENTIN. [Concomitant]
     Active Substance: GABAPENTIN
  9. LAMICTAL [Concomitant]
     Active Substance: LAMOTRIGINE

REACTIONS (2)
  - Panic attack [None]
  - Stomatitis [None]
